FAERS Safety Report 7892964-9 (Version None)
Quarter: 2011Q4

REPORT INFORMATION
  Report Type: 
  Country: None (occurrence: None)
  Receive Date: 20111104
  Receipt Date: 20111028
  Transmission Date: 20120403
  Serious: Yes (Other)
  Sender: FDA-Public Use
  Company Number: BR-SANOFI-AVENTIS-2011SA071419

PATIENT
  Age: 52 Year
  Sex: Female

DRUGS (2)
  1. ALL OTHER THERAPEUTIC PRODUCTS [Concomitant]
  2. GLYBURIDE [Suspect]
     Dosage: THERAPY START: 11 MONTHS AGO
     Route: 065
     Dates: start: 20100101

REACTIONS (4)
  - VISUAL ACUITY REDUCED [None]
  - EYE HAEMORRHAGE [None]
  - FEELING COLD [None]
  - FEELING ABNORMAL [None]
